FAERS Safety Report 7002935-2 (Version None)
Quarter: 2010Q3

REPORT INFORMATION
  Report Type: 
  Country: None (occurrence: None)
  Receive Date: 20100920
  Receipt Date: 20100210
  Transmission Date: 20110219
  Serious: Yes (Hospitalization)
  Sender: FDA-Public Use
  Company Number: US-ASTRAZENECA-2010SE06110

PATIENT
  Age: 58 Year
  Sex: Female

DRUGS (6)
  1. SEROQUEL [Suspect]
     Route: 048
     Dates: start: 20060101
  2. LAMICTAL [Concomitant]
     Route: 065
  3. NEURONTIN [Concomitant]
     Route: 065
  4. WELLBUTRIN [Concomitant]
     Route: 065
  5. BENZODIAZEPINES [Concomitant]
     Route: 065
  6. THYROID MEDICATION [Concomitant]
     Route: 065

REACTIONS (2)
  - DYSTONIA [None]
  - WEIGHT DECREASED [None]
